FAERS Safety Report 5722820-3 (Version None)
Quarter: 2008Q2

REPORT INFORMATION
  Report Type: 
  Country: None (occurrence: None)
  Receive Date: 20080429
  Receipt Date: 20080115
  Transmission Date: 20081010
  Serious: No
  Sender: FDA-Public Use
  Company Number: US-ASTRAZENECA-2008UW01231

PATIENT
  Age: 67 Year
  Sex: Male

DRUGS (5)
  1. NEXIUM [Suspect]
     Indication: GASTROOESOPHAGEAL REFLUX DISEASE
     Dates: start: 20060101
  2. KALETRA [Concomitant]
  3. EPZICOM [Concomitant]
  4. MEPRON [Concomitant]
  5. VIREAD [Concomitant]

REACTIONS (6)
  - DIZZINESS [None]
  - EAR PAIN [None]
  - HYPERTENSION [None]
  - NAUSEA [None]
  - PALPITATIONS [None]
  - TREMOR [None]
